FAERS Safety Report 6822524-X (Version None)
Quarter: 2010Q3

REPORT INFORMATION
  Report Type: 
  Country: None (occurrence: None)
  Receive Date: 20100707
  Receipt Date: 20100707
  Transmission Date: 20110219
  Serious: No
  Sender: FDA-Public Use
  Company Number: None

PATIENT
  Sex: Female

DRUGS (1)
  1. RISPERDONE [Suspect]
     Dosage: 2MG BID PO
     Route: 048
     Dates: start: 20100507, end: 20100706

REACTIONS (1)
  - BLOOD PROLACTIN INCREASED [None]
